FAERS Safety Report 16589916 (Version 1)
Quarter: 2019Q3

REPORT INFORMATION
  Report Type: Spontaneous
  Country: US (occurrence: US)
  Receive Date: 20190718
  Receipt Date: 20190718
  Transmission Date: 20191004
  Serious: Yes (Hospitalization)
  Sender: FDA-Public Use
  Company Number: US-TERSERA THERAPEUTICS LLC-2019TRS001193

PATIENT

DRUGS (4)
  1. PRIALT [Suspect]
     Active Substance: ZICONOTIDE ACETATE
     Indication: NEURALGIA
  2. PRIALT [Suspect]
     Active Substance: ZICONOTIDE ACETATE
     Indication: PAIN
  3. PRIALT [Suspect]
     Active Substance: ZICONOTIDE ACETATE
     Indication: MULTIPLE SCLEROSIS
     Dosage: 100 MCG, SINGLE
     Route: 037
     Dates: start: 20181022, end: 20181022
  4. PHENERGAN [Suspect]
     Active Substance: PROMETHAZINE HYDROCHLORIDE
     Indication: NAUSEA
     Dosage: UNK
     Route: 065

REACTIONS (16)
  - Urinary retention [Unknown]
  - Nystagmus [Unknown]
  - Gait inability [Unknown]
  - Somnolence [Not Recovered/Not Resolved]
  - Amnesia [Not Recovered/Not Resolved]
  - Nausea [Unknown]
  - Overdose [Unknown]
  - Personality change [Not Recovered/Not Resolved]
  - Vomiting [Unknown]
  - Balance disorder [Unknown]
  - Headache [Unknown]
  - Psychotic disorder [Recovered/Resolved]
  - Decreased appetite [Unknown]
  - Bladder pain [Unknown]
  - Lethargy [Not Recovered/Not Resolved]
  - Off label use [Unknown]

NARRATIVE: CASE EVENT DATE: 20181022
